FAERS Safety Report 10906369 (Version 1)
Quarter: 2015Q1

REPORT INFORMATION
  Report Type: Report from Study
  Country: BR (occurrence: BR)
  Receive Date: 20150312
  Receipt Date: 20150312
  Transmission Date: 20150721
  Serious: Yes (Disabling, Other)
  Sender: FDA-Public Use
  Company Number: PHHY2015BR028764

PATIENT
  Sex: Male
  Weight: 76 kg

DRUGS (2)
  1. EXELON PATCH [Suspect]
     Active Substance: RIVASTIGMINE
     Indication: DEMENTIA ALZHEIMER^S TYPE
     Dosage: 4.6 MG, QD
     Route: 062
  2. EXELON PATCH [Suspect]
     Active Substance: RIVASTIGMINE
     Indication: SCHIZOPHRENIA
     Dosage: 4.6 MG, QD
     Route: 062

REACTIONS (8)
  - Dysstasia [Unknown]
  - Headache [Unknown]
  - Product use issue [Unknown]
  - Gait disturbance [Unknown]
  - Head injury [Unknown]
  - Movement disorder [Unknown]
  - Cerebral thrombosis [Unknown]
  - Malaise [Unknown]
